FAERS Safety Report 6941533-3 (Version None)
Quarter: 2010Q3

REPORT INFORMATION
  Report Type: 
  Country: None (occurrence: None)
  Receive Date: 20100825
  Receipt Date: 20100817
  Transmission Date: 20110219
  Serious: Yes (Other)
  Sender: FDA-Public Use
  Company Number: US-AMGEN-QUU414935

PATIENT
  Sex: Female

DRUGS (1)
  1. ARANESP [Suspect]
     Indication: DIALYSIS

REACTIONS (4)
  - ANAEMIA [None]
  - AUTOIMMUNE DISORDER [None]
  - IRON DEFICIENCY [None]
  - THERAPEUTIC RESPONSE DECREASED [None]
